FAERS Safety Report 8798283 (Version 2)
Quarter: 2012Q4

REPORT INFORMATION
  Report Type: Spontaneous
  Country: US (occurrence: None)
  Receive Date: 20120913
  Receipt Date: 20121106
  Transmission Date: 20130627
  Serious: Yes (Other)
  Sender: FDA-Public Use
  Company Number: JPI-P-024965

PATIENT
  Age: 66 Year
  Sex: Male
  Weight: 83.92 kg

DRUGS (10)
  1. XYREM [Suspect]
     Indication: FIBROMYALGIA
     Route: 048
     Dates: start: 20081105
  2. XYREM [Suspect]
     Indication: FIBROMYALGIA
     Dosage: 3.5 gm 2nd dose/1 gm 3rd)
     Route: 048
  3. XYREM [Suspect]
     Indication: FIBROMYALGIA
  4. XYREM [Suspect]
     Indication: FIBROMYALGIA
  5. LABETALOL [Concomitant]
  6. LOSARTAN [Concomitant]
  7. SPIRONOLACTONE [Concomitant]
  8. AMLODIPINE [Concomitant]
  9. PHENYTOIN [Concomitant]
  10. HYDROCODONE [Concomitant]

REACTIONS (5)
  - Knee arthroplasty [None]
  - Poor quality sleep [None]
  - Prostatomegaly [None]
  - Sleep apnoea syndrome [None]
  - Condition aggravated [None]
